FAERS Safety Report 20621822 (Version 1)
Quarter: 2022Q1

REPORT INFORMATION
  Report Type: Spontaneous
  Country: CH (occurrence: CH)
  Receive Date: 20220322
  Receipt Date: 20220322
  Transmission Date: 20220424
  Serious: Yes (Other)
  Sender: FDA-Public Use
  Company Number: CH-ACRAF SpA-2022-026996

PATIENT
  Age: 39 Year
  Sex: Female
  Weight: 85 kg

DRUGS (6)
  1. XCOPRI [Suspect]
     Active Substance: CENOBAMATE
     Indication: Partial seizures
     Dosage: 400 MILLIGRAM (FILM-COATED TABLET), 1 DOSAGE FORM
     Route: 048
     Dates: start: 20210728, end: 20220309
  2. PHENOBARBITAL [Concomitant]
     Active Substance: PHENOBARBITAL
     Indication: Epilepsy
     Dosage: 50 MILLIGRAM, QD
     Route: 065
     Dates: start: 1982
  3. VALPROIC ACID [Concomitant]
     Active Substance: VALPROIC ACID
     Indication: Epilepsy
     Dosage: 500 MILLIGRAM, QD
     Route: 065
     Dates: start: 1992
  4. CLOBAZAM [Concomitant]
     Active Substance: CLOBAZAM
     Indication: Epilepsy
     Dosage: 20 MILLIGRAM, QD
     Route: 065
     Dates: start: 2015
  5. TOPIRAMATE [Concomitant]
     Active Substance: TOPIRAMATE
     Indication: Epilepsy
     Dosage: 400 MILLIGRAM, BID
     Route: 065
     Dates: start: 2017
  6. PERAMPANEL [Concomitant]
     Active Substance: PERAMPANEL
     Indication: Epilepsy
     Dosage: 10 MILLIGRAM, QD
     Route: 065
     Dates: start: 20211111, end: 20220120

REACTIONS (4)
  - Paraparesis [Recovering/Resolving]
  - Bradyphrenia [Recovering/Resolving]
  - Urinary incontinence [Recovering/Resolving]
  - Somnolence [Recovering/Resolving]

NARRATIVE: CASE EVENT DATE: 20211201
